FAERS Safety Report 6410546-2 (Version None)
Quarter: 2009Q4

REPORT INFORMATION
  Report Type: 
  Country: None (occurrence: None)
  Receive Date: 20091021
  Receipt Date: 20091021
  Transmission Date: 20100525
  Serious: Yes (Death)
  Sender: FDA-Public Use
  Company Number: None

PATIENT
  Sex: Female
  Weight: 60.5 kg

DRUGS (1)
  1. DONEPEZIL HCL [Suspect]
     Indication: COGNITIVE DISORDER
     Dosage: DONEPEZIL 5 MILLIGRAMS DAILY 047- ORAL
     Route: 048
     Dates: start: 20090829, end: 20091011

REACTIONS (7)
  - CELLULITIS [None]
  - GASTROINTESTINAL HAEMORRHAGE [None]
  - HAEMORRHAGIC ANAEMIA [None]
  - LUNG INFILTRATION [None]
  - PULMONARY EMBOLISM [None]
  - SEPTIC EMBOLUS [None]
  - URINARY TRACT INFECTION [None]
